FAERS Safety Report 7629192-8 (Version None)
Quarter: 2011Q3

REPORT INFORMATION
  Report Type: 
  Country: None (occurrence: None)
  Receive Date: 20110722
  Receipt Date: 20110712
  Transmission Date: 20111222
  Serious: Yes (Hospitalization)
  Sender: FDA-Public Use
  Company Number: PHHY2011US55976

PATIENT

DRUGS (2)
  1. CARBAMAZEPINE [Suspect]
     Indication: CONVULSION
     Dosage: 600 MG, UNK
     Route: 047
     Dates: end: 20110401
  2. VICODIN [Concomitant]
     Indication: OSTEOARTHRITIS

REACTIONS (3)
  - PAIN IN EXTREMITY [None]
  - VERTIGO [None]
  - OSTEOARTHRITIS [None]
